FAERS Safety Report 4705436-7 (Version None)
Quarter: 2005Q3

REPORT INFORMATION
  Report Type: 
  Country: None (occurrence: None)
  Receive Date: 20050701
  Receipt Date: 20050623
  Transmission Date: 20060218
  Serious: Yes (Disabling)
  Sender: FDA-Public Use
  Company Number: JP-GLAXOSMITHKLINE-B0385657A

PATIENT
  Age: 67 Year
  Sex: Male
  Weight: 56 kg

DRUGS (8)
  1. VALTREX [Suspect]
     Indication: HERPES ZOSTER
     Dosage: 1000MG THREE TIMES PER DAY
     Route: 048
     Dates: start: 20050619, end: 20050620
  2. LORCAM [Concomitant]
     Route: 048
  3. CYANOCOBALAMIN [Concomitant]
     Route: 065
  4. LENDORM [Concomitant]
     Route: 048
  5. ZYRTEC [Concomitant]
     Route: 048
  6. ALFAROL [Concomitant]
     Route: 048
  7. ADALAT [Concomitant]
     Route: 048
  8. PRORENAL [Concomitant]
     Route: 048

REACTIONS (2)
  - DELIRIUM [None]
  - EXCITABILITY [None]
